FAERS Safety Report 12140789 (Version 1)
Quarter: 2016Q1

REPORT INFORMATION
  Report Type: Spontaneous
  Country: CH (occurrence: CH)
  Receive Date: 20160303
  Receipt Date: 20160303
  Transmission Date: 20160526
  Serious: Yes (Other)
  Sender: FDA-Public Use
  Company Number: CH-TEVA-640073ISR

PATIENT
  Sex: Female

DRUGS (1)
  1. ARIPIPRAZOL-MEPHA 10 [Suspect]
     Active Substance: ARIPIPRAZOLE
     Dosage: THERAPY DURATION ABOUT 3 MONTHS
     Route: 065

REACTIONS (3)
  - Product substitution issue [Unknown]
  - Drug effect decreased [Unknown]
  - Mental impairment [Recovering/Resolving]
